FAERS Safety Report 21468332 (Version 1)
Quarter: 2022Q4

REPORT INFORMATION
  Report Type: Spontaneous
  Country: US (occurrence: US)
  Receive Date: 20221017
  Receipt Date: 20221017
  Transmission Date: 20230112
  Serious: No
  Sender: FDA-Public Use
  Company Number: US-GALDERMA-US2022012365

PATIENT

DRUGS (6)
  1. PROACTIV MD ADAPALENE ACNE TREATMENT [Suspect]
     Active Substance: ADAPALENE
     Indication: Seborrhoea
     Dosage: 1 DOSAGE FORM, BID
     Route: 061
     Dates: start: 2022, end: 2022
  2. Proactiv MD Ultra Gentle Cleanser [Concomitant]
     Indication: Seborrhoea
     Dosage: 1 DOSAGE FORM, BID
     Route: 061
     Dates: start: 2022, end: 2022
  3. Proactiv MD Ultra Hydrating Moisturizer [Concomitant]
     Indication: Seborrhoea
     Dosage: 1 DOSAGE FORM, BID
     Route: 061
     Dates: start: 2022, end: 2022
  4. PROACTIV ACNE BODY WASH [Concomitant]
     Active Substance: SALICYLIC ACID
     Indication: Seborrhoea
     Dosage: 1 DOSAGE FORM, BID
     Route: 061
     Dates: start: 2022, end: 2022
  5. Proactiv Amazonian Clay Mask [Concomitant]
     Indication: Seborrhoea
     Dosage: 1 DOSAGE FORM, BID
     Route: 061
     Dates: start: 2022, end: 2022
  6. PROACTIV BLACKHEAD DISSOLVING [Concomitant]
     Active Substance: SALICYLIC ACID
     Indication: Seborrhoea
     Dosage: 1 DOSAGE FORM, BID
     Route: 061
     Dates: start: 2022, end: 2022

REACTIONS (4)
  - Acne [Recovered/Resolved]
  - Product use in unapproved indication [Recovered/Resolved]
  - Inappropriate schedule of product administration [Recovered/Resolved]
  - Overdose [Recovered/Resolved]

NARRATIVE: CASE EVENT DATE: 20220101
